FAERS Safety Report 6370929-6 (Version None)
Quarter: 2009Q3

REPORT INFORMATION
  Report Type: 
  Country: None (occurrence: None)
  Receive Date: 20090923
  Receipt Date: 20071008
  Transmission Date: 20100115
  Serious: Yes (Other)
  Sender: FDA-Public Use
  Company Number: US-ASTRAZENECA-2006UW23154

PATIENT
  Age: 559 Month
  Sex: Male
  Weight: 103 kg

DRUGS (28)
  1. SEROQUEL [Suspect]
     Indication: ANXIETY
     Route: 048
     Dates: start: 20041201
  2. SEROQUEL [Suspect]
     Indication: DEPRESSION
     Route: 048
     Dates: start: 20041201
  3. SEROQUEL [Suspect]
     Indication: INSOMNIA
     Route: 048
     Dates: start: 20041201
  4. SEROQUEL [Suspect]
     Indication: SCHIZOPHRENIA
     Route: 048
     Dates: start: 20041201
  5. SEROQUEL [Suspect]
     Indication: AFFECTIVE DISORDER
     Route: 048
     Dates: start: 20041201
  6. SEROQUEL [Suspect]
     Dosage: 50 - 450 MG
     Route: 048
     Dates: start: 20041203
  7. SEROQUEL [Suspect]
     Dosage: 50 - 450 MG
     Route: 048
     Dates: start: 20041203
  8. SEROQUEL [Suspect]
     Dosage: 50 - 450 MG
     Route: 048
     Dates: start: 20041203
  9. SEROQUEL [Suspect]
     Dosage: 50 - 450 MG
     Route: 048
     Dates: start: 20041203
  10. SEROQUEL [Suspect]
     Dosage: 50 - 450 MG
     Route: 048
     Dates: start: 20041203
  11. ABILIFY [Concomitant]
  12. RISPERDAL [Concomitant]
  13. ATENOLOL [Concomitant]
     Indication: HYPERTENSION
     Dosage: 25 - 50 MG
     Route: 048
  14. TYLENOL (CAPLET) [Concomitant]
     Indication: HEADACHE
     Route: 048
  15. PAXIL [Concomitant]
     Indication: PANIC ATTACK
     Route: 048
  16. PAXIL [Concomitant]
     Indication: AFFECTIVE DISORDER
     Route: 048
  17. ELAVIL [Concomitant]
     Indication: PAIN
     Route: 048
  18. ELAVIL [Concomitant]
     Indication: AFFECTIVE DISORDER
     Route: 048
  19. ZOLOFT [Concomitant]
     Indication: DEPRESSION
     Route: 048
  20. ZOLOFT [Concomitant]
     Indication: AFFECTIVE DISORDER
     Route: 048
  21. TRAZODONE [Concomitant]
     Indication: SLEEP DISORDER
     Dosage: 50 - 100 MG AT NIGHT P.R.N
     Route: 048
  22. VISTARIL [Concomitant]
     Indication: INSOMNIA
     Dosage: 25 - 50 MG
     Route: 048
  23. CLARITIN [Concomitant]
     Route: 048
  24. VIOXX [Concomitant]
     Route: 048
  25. HYDROXYZINE [Concomitant]
     Route: 048
  26. PROTONIX [Concomitant]
     Indication: GASTROOESOPHAGEAL REFLUX DISEASE
     Route: 048
  27. BEXTRA [Concomitant]
     Dosage: 10 MG DAILY  P.R.N.
  28. ULTRAM [Concomitant]
     Indication: PAIN
     Route: 048

REACTIONS (4)
  - BLOOD GLUCOSE INCREASED [None]
  - DIABETES MELLITUS [None]
  - RESPIRATORY DISORDER [None]
  - VISION BLURRED [None]
